FAERS Safety Report 9313004 (Version 1)
Quarter: 2013Q2

REPORT INFORMATION
  Report Type: Spontaneous
  Country: US (occurrence: US)
  Receive Date: 20130528
  Receipt Date: 20130528
  Transmission Date: 20140414
  Serious: No
  Sender: FDA-Public Use
  Company Number: US-ABBOTT-13P-163-1070210-00

PATIENT
  Age: 66 Year
  Sex: Male
  Weight: 89.89 kg

DRUGS (12)
  1. ANDROGEL [Suspect]
     Indication: BLOOD TESTOSTERONE DECREASED
     Dosage: 2 PUMPS
     Route: 061
     Dates: start: 201211, end: 20130323
  2. WARFARIN [Concomitant]
     Indication: PRODUCT USED FOR UNKNOWN INDICATION
  3. MULTIVITAMIN [Concomitant]
     Indication: SUPPLEMENTATION THERAPY
  4. FISH OIL [Concomitant]
     Indication: SUPPLEMENTATION THERAPY
  5. VITAMIN B12 [Concomitant]
     Indication: SUPPLEMENTATION THERAPY
  6. CO Q 10 [Concomitant]
     Indication: SUPPLEMENTATION THERAPY
  7. L-LYSINE [Concomitant]
     Indication: SUPPLEMENTATION THERAPY
  8. VITAMIN C [Concomitant]
     Indication: SUPPLEMENTATION THERAPY
  9. VITAMIN C [Concomitant]
     Indication: SUPPLEMENTATION THERAPY
  10. SAW PALMETO [Concomitant]
     Indication: SUPPLEMENTATION THERAPY
  11. VITAMIN D3 [Concomitant]
     Indication: SUPPLEMENTATION THERAPY
  12. MELATONIN [Concomitant]
     Indication: INSOMNIA

REACTIONS (1)
  - Weight decreased [Not Recovered/Not Resolved]
